FAERS Safety Report 5833316-2 (Version None)
Quarter: 2008Q3

REPORT INFORMATION
  Report Type: 
  Country: None (occurrence: None)
  Receive Date: 20080804
  Receipt Date: 20080804
  Transmission Date: 20090109
  Serious: Yes (Other)
  Sender: FDA-Public Use
  Company Number: None

PATIENT
  Sex: Female
  Weight: 79.3795 kg

DRUGS (1)
  1. RECLAST [Suspect]
     Indication: OSTEITIS DEFORMANS
     Dosage: 5MGM 1 X YEAR ?? IV
     Route: 042
     Dates: start: 20080301

REACTIONS (3)
  - ABASIA [None]
  - BEDRIDDEN [None]
  - MUSCLE SPASMS [None]
